FAERS Safety Report 13589808 (Version 1)
Quarter: 2017Q2

REPORT INFORMATION
  Report Type: Spontaneous
  Country: US (occurrence: US)
  Receive Date: 20170528
  Receipt Date: 20170528
  Transmission Date: 20170830
  Serious: Yes (Other)
  Sender: FDA-Public Use
  Company Number: None

PATIENT
  Age: 48 Year
  Sex: Female
  Weight: 67.5 kg

DRUGS (4)
  1. CENTRUM DAILY VITAMIN [Concomitant]
  2. IBUPROFREN 800MG [Suspect]
     Active Substance: IBUPROFEN
     Indication: UTERINE LEIOMYOMA
     Dosage: ?          QUANTITY:90 TABLET(S);?AS NEEDED ORAL
     Route: 048
     Dates: start: 20170424, end: 20170425
  3. SINGULAIR [Concomitant]
     Active Substance: MONTELUKAST SODIUM
  4. SUMATRIPTAN. [Concomitant]
     Active Substance: SUMATRIPTAN

REACTIONS (5)
  - Product odour abnormal [None]
  - Nausea [None]
  - Dizziness [None]
  - Product substitution issue [None]
  - Product taste abnormal [None]

NARRATIVE: CASE EVENT DATE: 20170425
